FAERS Safety Report 19502564 (Version 4)
Quarter: 2021Q3

REPORT INFORMATION
  Report Type: Report from Study
  Country: ES (occurrence: ES)
  Receive Date: 20210707
  Receipt Date: 20210928
  Transmission Date: 20211014
  Serious: Yes (Hospitalization)
  Sender: FDA-Public Use
  Company Number: ES-ROCHE-2844896

PATIENT
  Age: 61 Year
  Sex: Male
  Weight: 84.5 kg

DRUGS (7)
  1. ATEZOLIZUMAB. [Suspect]
     Active Substance: ATEZOLIZUMAB
     Indication: METASTATIC NEOPLASM
     Dosage: ON 26/MAY/2021, RECEIVED MOST RECENT DOSE OF ATEZOLIZUMAB (01:00 PM) AT 2520 MG
     Route: 042
     Dates: start: 20210526
  2. DUODART [Concomitant]
     Active Substance: DUTASTERIDE\TAMSULOSIN
     Dosage: 1 CAPSULE
     Route: 048
  3. PARACETAMOL [Concomitant]
     Active Substance: ACETAMINOPHEN
     Indication: ABDOMINAL PAIN UPPER
     Route: 048
  4. FLUMILEXA [Concomitant]
     Indication: COUGH
     Route: 048
     Dates: start: 20210602
  5. DUPHALAC [Concomitant]
     Active Substance: LACTULOSE
     Indication: CONSTIPATION
     Route: 048
  6. TIRAGOLUMAB. [Suspect]
     Active Substance: TIRAGOLUMAB
     Indication: METASTATIC NEOPLASM
     Dosage: ON SAME DAY (1: PM AND 3: PM RECEIVED MOST RECENT DOSE (2520 MG)
     Route: 042
     Dates: start: 20210526
  7. CETIRIZINE [Concomitant]
     Active Substance: CETIRIZINE HYDROCHLORIDE
     Indication: PRURITUS
     Route: 048
     Dates: start: 20210602

REACTIONS (2)
  - Hyperbilirubinaemia [Recovering/Resolving]
  - Prosthesis implantation [Recovered/Resolved]

NARRATIVE: CASE EVENT DATE: 20210602
